FAERS Safety Report 18997042 (Version 1)
Quarter: 2021Q1

REPORT INFORMATION
  Report Type: Spontaneous
  Country: US (occurrence: US)
  Receive Date: 20210311
  Receipt Date: 20210311
  Transmission Date: 20210420
  Serious: Yes (Death)
  Sender: FDA-Public Use
  Company Number: None

PATIENT
  Age: 61 Year
  Sex: Female
  Weight: 113.9 kg

DRUGS (2)
  1. DAUNORUBICIN [Suspect]
     Active Substance: DAUNORUBICIN
     Dates: end: 20200801
  2. CYTARABINE. [Suspect]
     Active Substance: CYTARABINE
     Dates: end: 20200805

REACTIONS (7)
  - Haemorrhage intracranial [None]
  - Pulse absent [None]
  - Anal abscess [None]
  - Stenotrophomonas infection [None]
  - Vascular device infection [None]
  - Thrombocytopenia [None]
  - Pseudomonal sepsis [None]

NARRATIVE: CASE EVENT DATE: 20200827
